FAERS Safety Report 5477311-4 (Version None)
Quarter: 2007Q4

REPORT INFORMATION
  Report Type: 
  Country: None (occurrence: None)
  Receive Date: 20071004
  Receipt Date: 20070927
  Transmission Date: 20080405
  Serious: Yes (Hospitalization)
  Sender: FDA-Public Use
  Company Number: FR-ASTRAZENECA-2007CG01377

PATIENT
  Age: 21827 Day
  Sex: Male

DRUGS (7)
  1. INEXIUM [Suspect]
     Route: 048
  2. CORDARONE [Suspect]
     Route: 048
     Dates: end: 20070101
  3. CORDARONE [Suspect]
     Route: 048
     Dates: start: 20070101
  4. PERINDOPRIL ERBUMINE [Suspect]
     Indication: HYPERTENSION
     Route: 048
  5. ASPEGIC 325 [Suspect]
     Indication: ATRIAL FIBRILLATION
     Route: 048
     Dates: end: 20070101
  6. PREVISCAN [Suspect]
     Route: 048
     Dates: end: 20070101
  7. LEVOTHYROXINE SODIUM [Suspect]
     Indication: HYPOTHYROIDISM
     Route: 048

REACTIONS (1)
  - RECTAL HAEMORRHAGE [None]
